FAERS Safety Report 12355219 (Version 1)
Quarter: 2016Q2

REPORT INFORMATION
  Report Type: Spontaneous
  Country: US (occurrence: None)
  Receive Date: 20160510
  Receipt Date: 20160510
  Transmission Date: 20160815
  Serious: Yes (Other)
  Sender: FDA-Public Use
  Company Number: None

PATIENT
  Age: 59 Year
  Sex: Female
  Weight: 48.63 kg

DRUGS (1)
  1. WELLBUTRIN SR [Suspect]
     Active Substance: BUPROPION HYDROCHLORIDE
     Indication: DEPRESSION
     Dosage: 150
     Route: 048
     Dates: start: 201406, end: 201511

REACTIONS (4)
  - Anxiety [None]
  - Agitation [None]
  - Product substitution issue [None]
  - Speech disorder [None]

NARRATIVE: CASE EVENT DATE: 20151201
